FAERS Safety Report 12344584 (Version 2)
Quarter: 2016Q4

REPORT INFORMATION
  Report Type: Spontaneous
  Country: US (occurrence: US)
  Receive Date: 20160507
  Receipt Date: 20161212
  Transmission Date: 20170207
  Serious: Yes (Hospitalization)
  Sender: FDA-Public Use
  Company Number: US-JNJFOC-20160404651

PATIENT
  Age: 61 Year
  Sex: Male

DRUGS (10)
  1. ASPIRIN. [Suspect]
     Active Substance: ASPIRIN
     Indication: CARDIAC DISORDER
     Route: 065
  2. XARELTO [Suspect]
     Active Substance: RIVAROXABAN
     Indication: CHEST PAIN
     Route: 048
     Dates: start: 20130326, end: 20150124
  3. TORADOL [Suspect]
     Active Substance: KETOROLAC TROMETHAMINE
     Indication: PAIN
     Route: 065
  4. XARELTO [Suspect]
     Active Substance: RIVAROXABAN
     Indication: ATRIAL FIBRILLATION
     Route: 048
     Dates: start: 20130326, end: 20150124
  5. XARELTO [Suspect]
     Active Substance: RIVAROXABAN
     Indication: THROMBOSIS
     Route: 048
     Dates: start: 20130326, end: 20150124
  6. ANSAID [Suspect]
     Active Substance: FLURBIPROFEN
     Indication: PAIN
     Route: 065
  7. TORADOL [Suspect]
     Active Substance: KETOROLAC TROMETHAMINE
     Indication: ARTHRALGIA
     Route: 065
  8. PONSTEL [Suspect]
     Active Substance: MEFENAMIC ACID
     Indication: PAIN
     Route: 065
  9. PONSTEL [Suspect]
     Active Substance: MEFENAMIC ACID
     Indication: ARTHRALGIA
     Route: 065
  10. ANSAID [Suspect]
     Active Substance: FLURBIPROFEN
     Indication: ARTHRALGIA
     Route: 065

REACTIONS (1)
  - Diverticulum intestinal haemorrhagic [Recovering/Resolving]

NARRATIVE: CASE EVENT DATE: 20150124
